FAERS Safety Report 10672144 (Version 2)
Quarter: 2015Q1

REPORT INFORMATION
  Report Type: Other
  Country: GB (occurrence: GB)
  Receive Date: 20141223
  Receipt Date: 20150110
  Transmission Date: 20150720
  Serious: Yes (Other)
  Sender: FDA-Public Use
  Company Number: GB-MYLANLABS-2014M1014312

PATIENT

DRUGS (2)
  1. NEXPLANON [Suspect]
     Active Substance: ETONOGESTREL
     Dosage: UNK
     Route: 059
     Dates: start: 20120109
  2. RIFAMPICIN [Suspect]
     Active Substance: RIFAMPIN
     Indication: TUBERCULOSIS
     Dosage: UNK

REACTIONS (4)
  - Tuberculosis [Unknown]
  - Exposure during pregnancy [Unknown]
  - Unintended pregnancy [Unknown]
  - Drug interaction [Unknown]

NARRATIVE: CASE EVENT DATE: 201310
